FAERS Safety Report 24226082 (Version 1)
Quarter: 2024Q3

REPORT INFORMATION
  Report Type: Spontaneous
  Country: NL (occurrence: NL)
  Receive Date: 20240820
  Receipt Date: 20240820
  Transmission Date: 20241017
  Serious: Yes (Life-Threatening, Hospitalization, Other)
  Sender: AUROBINDO
  Company Number: NL-LRB-00995888

PATIENT
  Age: 74 Year
  Sex: Male
  Weight: 93.2 kg

DRUGS (4)
  1. IRINOTECAN [Suspect]
     Active Substance: IRINOTECAN
     Indication: Pancreatic carcinoma
     Dosage: 317 MILLIGRAM (TREATMENT DRESSING, 317 MG)
     Route: 065
     Dates: start: 20240718
  2. FLUOROURACIL [Suspect]
     Active Substance: FLUOROURACIL
     Indication: Pancreatic carcinoma
     Dosage: 5073 MILLIGRAM (TREATMENT DRESSING, 5073 MG)
     Route: 065
     Dates: start: 20240718
  3. OXALIPLATIN [Suspect]
     Active Substance: OXALIPLATIN
     Indication: Pancreatic carcinoma
     Dosage: 180 MILLIGRAM (TREATMENT DRESSING, 180 MG)
     Route: 065
     Dates: start: 20240718
  4. LEUCOVORIN CALCIUM [Suspect]
     Active Substance: LEUCOVORIN CALCIUM
     Indication: Pancreatic carcinoma
     Dosage: 846 MILLIGRAM (KUURVERBAND, 846 MG)
     Route: 065
     Dates: start: 20240718

REACTIONS (2)
  - Colitis [Not Recovered/Not Resolved]
  - Ileus paralytic [Not Recovered/Not Resolved]
